FAERS Safety Report 23382273 (Version 1)
Quarter: 2024Q1

REPORT INFORMATION
  Report Type: Spontaneous
  Country: CH (occurrence: CH)
  Receive Date: 20240109
  Receipt Date: 20240109
  Transmission Date: 20240410
  Serious: Yes (Hospitalization, Other)
  Sender: FDA-Public Use
  Company Number: CH-MYLANLABS-2024M1002232

PATIENT
  Age: 6 Decade
  Sex: Male

DRUGS (4)
  1. FLUOROURACIL [Suspect]
     Active Substance: FLUOROURACIL
     Indication: Adenocarcinoma of colon
     Dosage: 400 MILLIGRAM/SQ. METER, BIWEEKLY; RECEIVED BOLUS AT DAY 1 OF EVERY CYCLE OF CHEMOTHERAPY TILL 11 CY
     Route: 065
  2. FLUOROURACIL [Suspect]
     Active Substance: FLUOROURACIL
     Dosage: 2400 MILLIGRAM/SQ. METER, BIWEEKLY; RECEIVED INFUSION OVER 48 HOURS AT DAY 1?2 OF EVERY CHEMOTHERAPY
     Route: 065
  3. LEUCOVORIN [Suspect]
     Active Substance: LEUCOVORIN\LEUCOVORIN CALCIUM
     Indication: Adenocarcinoma of colon
     Dosage: 200 MILLIGRAM/SQ. METER, BIWEEKLY; RECEIVED AT DAY 1 OF EVERY CYCLE OF CHEMOTHERAPY TILL 11 CYCLES
     Route: 065
  4. OXALIPLATIN [Suspect]
     Active Substance: OXALIPLATIN
     Indication: Adenocarcinoma of colon
     Dosage: 85 MILLIGRAM/SQ. METER, BIWEEKLY; RECEIVED AT DAY 1 OF EVERY CYCLE OF CHEMOTHERAPY TILL 11 CYCLE
     Route: 065

REACTIONS (3)
  - Hypertriglyceridaemia [Recovered/Resolved]
  - Deep vein thrombosis [Unknown]
  - Polyneuropathy [Unknown]
